FAERS Safety Report 15616942 (Version 1)
Quarter: 2018Q4

REPORT INFORMATION
  Report Type: Spontaneous
  Country: SE (occurrence: SE)
  Receive Date: 20181114
  Receipt Date: 20181114
  Transmission Date: 20190205
  Serious: Yes (Hospitalization)
  Sender: FDA-Public Use
  Company Number: SE-PFIZER INC-2018460058

PATIENT
  Age: 78 Year
  Sex: Female

DRUGS (13)
  1. METOPROLOL SANDOZ [METOPROLOL SUCCINATE] [Concomitant]
  2. XARELTO [Concomitant]
     Active Substance: RIVAROXABAN
  3. MOLLIPECT [BROMHEXINE HYDROCHLORIDE;EPHEDRINE HYDROCHLORIDE;ETHANOL;PO [Concomitant]
     Dosage: UNK, AS NEEDED
  4. PROPYLESS [Concomitant]
     Dosage: UNK, AS NEEDED
  5. ALVEDON [Concomitant]
     Active Substance: ACETAMINOPHEN
  6. ESOMEPRAZOL ACTAVIS [Concomitant]
     Active Substance: ESOMEPRAZOLE
  7. SUTENT [Suspect]
     Active Substance: SUNITINIB MALATE
     Dosage: 25 MG, DAILY
     Route: 048
     Dates: start: 20171220, end: 20180828
  8. SUMATRIPTAN ACCORD [Concomitant]
     Dosage: UNK UNK, AS NEEDED
  9. SILON [Concomitant]
     Dosage: UNK UNK, AS NEEDED
  10. MOVICOL [Concomitant]
     Active Substance: POLYETHYLENE GLYCOL 3350\POTASSIUM CHLORIDE\SODIUM BICARBONATE\SODIUM CHLORIDE
     Dosage: UNK UNK, AS NEEDED
  11. MIRTAZAPIN ACTAVIS [Concomitant]
     Active Substance: MIRTAZAPINE
  12. CILAXORAL [Concomitant]
     Active Substance: SODIUM PICOSULFATE
     Dosage: UNK, AS NEEDED
  13. OXYCONTIN [Concomitant]
     Active Substance: OXYCODONE HYDROCHLORIDE

REACTIONS (1)
  - Generalised oedema [Recovered/Resolved]

NARRATIVE: CASE EVENT DATE: 201808
